FAERS Safety Report 20973311 (Version 2)
Quarter: 2022Q3

REPORT INFORMATION
  Report Type: Report from Study
  Country: CN (occurrence: CN)
  Receive Date: 20220617
  Receipt Date: 20220722
  Transmission Date: 20221027
  Serious: Yes (Hospitalization)
  Sender: FDA-Public Use
  Company Number: CN-JNJFOC-20220612334

PATIENT
  Age: 66 Year
  Sex: Female
  Weight: 57.9 kg

DRUGS (9)
  1. AMIVANTAMAB [Suspect]
     Active Substance: AMIVANTAMAB
     Indication: Non-small cell lung cancer
     Route: 042
     Dates: start: 20210120, end: 20220428
  2. AMMONIUM GLYCYRRHIZATE\CYSTEINE HYDROCHLORIDE\GLYCINE [Concomitant]
     Active Substance: AMMONIUM GLYCYRRHIZATE\CYSTEINE HYDROCHLORIDE\GLYCINE
     Indication: Infection
     Route: 048
     Dates: start: 20220331
  3. AMMONIUM GLYCYRRHIZATE\CYSTEINE HYDROCHLORIDE\GLYCINE [Concomitant]
     Active Substance: AMMONIUM GLYCYRRHIZATE\CYSTEINE HYDROCHLORIDE\GLYCINE
     Route: 048
     Dates: start: 20220331
  4. FUSIDIC ACID [Concomitant]
     Active Substance: FUSIDIC ACID
     Indication: Infection
     Dosage: SUITABLE AMOUNT FOR EXTERNAL USE
     Dates: start: 20220331
  5. FUSIDIC ACID [Concomitant]
     Active Substance: FUSIDIC ACID
     Dosage: SUITABLE AMOUNT FOR EXTERNAL USE
     Dates: start: 20220603, end: 20220620
  6. EPIDERMAL GROWTH FACTOR [Concomitant]
     Indication: Promotion of wound healing
     Dosage: MODERATE AMOUNT/CREAM FOR EXTERNAL USE
     Route: 061
     Dates: start: 20220331
  7. EPIDERMAL GROWTH FACTOR [Concomitant]
     Dosage: MODERATE AMOUNT/CREAM FOR EXTERNAL USE
     Route: 061
     Dates: start: 20220607
  8. POVIDONE-IODINE [Concomitant]
     Active Substance: POVIDONE-IODINE
     Indication: Product used for unknown indication
     Dosage: AMOUNT/WATER FOR EXTERNAL USE
     Dates: start: 20220331
  9. MINOCYCLINE HYDROCHLORIDE [Concomitant]
     Active Substance: MINOCYCLINE HYDROCHLORIDE
     Indication: Product used for unknown indication
     Route: 048
     Dates: start: 20220429

REACTIONS (1)
  - Skin infection [Recovering/Resolving]

NARRATIVE: CASE EVENT DATE: 20220603
